FAERS Safety Report 5055407-9 (Version None)
Quarter: 2006Q3

REPORT INFORMATION
  Report Type: 
  Country: None (occurrence: None)
  Receive Date: 20060718
  Receipt Date: 20060718
  Transmission Date: 20061208
  Serious: Yes (Hospitalization)
  Sender: FDA-Public Use
  Company Number: None

PATIENT
  Age: 56 Year
  Sex: Male

DRUGS (8)
  1. CHLORDIAZEPOXIDE [Suspect]
     Indication: ALCOHOL DETOXIFICATION
     Dosage: 50 MG X 3 DAY AND 25 MG X 3 DYS
     Dates: start: 20060501
  2. PLAVIX [Concomitant]
  3. FOLIC ACID [Concomitant]
  4. GABAPENTIN [Concomitant]
  5. NPH INSULIN [Concomitant]
  6. ISOSORBIDE DINITRATE [Concomitant]
  7. METFORMIN [Concomitant]
  8. ASPIRIN [Concomitant]

REACTIONS (2)
  - GAIT DISTURBANCE [None]
  - VISION BLURRED [None]
